FAERS Safety Report 7351005-2 (Version None)
Quarter: 2011Q1

REPORT INFORMATION
  Report Type: 
  Country: None (occurrence: None)
  Receive Date: 20110314
  Receipt Date: 20110301
  Transmission Date: 20110831
  Serious: Yes (Hospitalization)
  Sender: FDA-Public Use
  Company Number: PHHY2011GB17637

PATIENT
  Age: 37 Year
  Sex: Female

DRUGS (7)
  1. PHENYTOIN [Interacting]
     Indication: CONVULSION
     Dosage: 375 MG, UNK
  2. LAMOTRIGINE [Suspect]
     Indication: CONVULSION
     Dosage: 500 MG
  3. PHENYTOIN [Interacting]
     Dosage: 325 MG, QD
  4. CLONAZEPAM [Interacting]
     Indication: CONVULSION
     Dosage: 2 MG, UNK
  5. LACOSAMIDE [Interacting]
     Indication: CONVULSION
     Dosage: 200 MG, UNK
  6. LAMOTRIGINE [Interacting]
     Dosage: 450 MG, QD
  7. RUFINAMIDE [Interacting]
     Indication: CONVULSION
     Dosage: 1000 MG, UNK

REACTIONS (7)
  - DRUG INTERACTION [None]
  - DIPLOPIA [None]
  - DIZZINESS [None]
  - NEUROTOXICITY [None]
  - ANTICONVULSANT DRUG LEVEL INCREASED [None]
  - DRUG LEVEL DECREASED [None]
  - BALANCE DISORDER [None]
